FAERS Safety Report 16115042 (Version 1)
Quarter: 2019Q1

REPORT INFORMATION
  Report Type: Spontaneous
  Country: US (occurrence: US)
  Receive Date: 20190325
  Receipt Date: 20190325
  Transmission Date: 20190418
  Serious: No
  Sender: FDA-Public Use
  Company Number: US-SMITH AND NEPHEW, INC-2018SMT00152

PATIENT
  Age: 63 Year
  Sex: Female
  Weight: 103.86 kg

DRUGS (2)
  1. COLLAGENASE SANTYL [Suspect]
     Active Substance: COLLAGENASE CLOSTRIDIUM HISTOLYTICUM
     Indication: WOUND
     Dosage: ^A PEA SIZED AMOUNT,^ THE AMOUNT SHE THINKS IT SHOULD GO ON, 1X/DAY
     Route: 061
     Dates: start: 201809
  2. COLLAGENASE SANTYL [Suspect]
     Active Substance: COLLAGENASE CLOSTRIDIUM HISTOLYTICUM
     Dosage: MULTIPLE TIMES A DAY
     Route: 061
     Dates: start: 2018

REACTIONS (6)
  - Pruritus [Not Recovered/Not Resolved]
  - Wound secretion [Not Recovered/Not Resolved]
  - Drug ineffective [Not Recovered/Not Resolved]
  - Wound complication [Not Recovered/Not Resolved]
  - Fatigue [Not Recovered/Not Resolved]
  - Neuralgia [Recovered/Resolved]

NARRATIVE: CASE EVENT DATE: 2018
